FAERS Safety Report 20784544 (Version 3)
Quarter: 2022Q3

REPORT INFORMATION
  Report Type: Report from Study
  Country: US (occurrence: US)
  Receive Date: 20220504
  Receipt Date: 20220927
  Transmission Date: 20221027
  Serious: Yes (Hospitalization, Other)
  Sender: FDA-Public Use
  Company Number: US-BRISTOL-MYERS SQUIBB COMPANY-2022-014300

PATIENT
  Age: 77 Year
  Sex: Female
  Weight: 136.08 kg

DRUGS (1)
  1. POMALYST [Suspect]
     Active Substance: POMALIDOMIDE
     Indication: Product used for unknown indication
     Dosage: EXPIRY DATE: 30-NOV-2025
     Route: 048
     Dates: start: 20180321

REACTIONS (4)
  - White blood cell count decreased [Unknown]
  - Multiple fractures [Unknown]
  - COVID-19 [Unknown]
  - Urinary tract infection [Unknown]
